FAERS Safety Report 7476156-3 (Version None)
Quarter: 2011Q2

REPORT INFORMATION
  Report Type: 
  Country: None (occurrence: None)
  Receive Date: 20110512
  Receipt Date: 20110503
  Transmission Date: 20111010
  Serious: Yes (Other)
  Sender: FDA-Public Use
  Company Number: GB-ASTRAZENECA-2011SE25753

PATIENT
  Age: 44 Year
  Sex: Male

DRUGS (9)
  1. RAMIPRIL [Concomitant]
     Indication: HYPERTENSION
  2. QUETIAPINE [Suspect]
     Indication: PSYCHOTIC DISORDER
     Route: 065
  3. RISPERDAL [Suspect]
     Indication: PSYCHOTIC DISORDER
     Route: 048
  4. SYMBICORT [Concomitant]
     Indication: ASTHMA
  5. AMLODIPINE BESYLATE [Concomitant]
     Indication: HYPERTENSION
  6. SILDENAFIL [Concomitant]
     Indication: ERECTILE DYSFUNCTION
  7. METFORMIN HCL [Concomitant]
     Indication: TYPE 2 DIABETES MELLITUS
  8. GLICLAZIDE [Concomitant]
     Indication: DIABETES MELLITUS
  9. ZOPLICONE [Concomitant]
     Indication: INSOMNIA

REACTIONS (1)
  - WHITE BLOOD CELL COUNT INCREASED [None]
